FAERS Safety Report 25278843 (Version 1)
Quarter: 2025Q2

REPORT INFORMATION
  Report Type: Spontaneous
  Country: TW (occurrence: TW)
  Receive Date: 20250507
  Receipt Date: 20250507
  Transmission Date: 20250717
  Serious: Yes (Hospitalization, Other)
  Sender: PFIZER
  Company Number: TW-PFIZER INC-PV202500053895

PATIENT
  Age: 67 Year
  Sex: Female
  Weight: 40 kg

DRUGS (4)
  1. ZYVOX [Suspect]
     Active Substance: LINEZOLID
     Indication: Skin infection
     Dosage: 600 MG, 2X/DAY (EVERY 12 HOURS)
     Route: 048
     Dates: start: 20241115, end: 20241203
  2. ZYVOX [Suspect]
     Active Substance: LINEZOLID
     Indication: Cellulitis
  3. ZYVOX [Suspect]
     Active Substance: LINEZOLID
     Indication: Postoperative wound infection
  4. REXULTI [Concomitant]
     Active Substance: BREXPIPRAZOLE
     Indication: Schizophrenia
     Dosage: 2 MG, 1X/DAY (2 TABS ONCE PER DAY)
     Route: 048
     Dates: start: 20241119

REACTIONS (2)
  - Hepatic function abnormal [Recovering/Resolving]
  - Pneumonia [Recovering/Resolving]

NARRATIVE: CASE EVENT DATE: 20241203
